FAERS Safety Report 10647696 (Version 2)
Quarter: 2014Q4

REPORT INFORMATION
  Report Type: Report from Study
  Country: GR (occurrence: GR)
  Receive Date: 20141212
  Receipt Date: 20141212
  Transmission Date: 20150529
  Serious: Yes (Other)
  Sender: FDA-Public Use
  Company Number: GR-ROCHE-1372878

PATIENT
  Sex: Female
  Weight: 75 kg

DRUGS (1)
  1. ROACTEMRA [Suspect]
     Active Substance: TOCILIZUMAB
     Indication: RHEUMATOID ARTHRITIS
     Route: 042
     Dates: start: 20131101, end: 20141110

REACTIONS (3)
  - Pain [Unknown]
  - Oedema [Not Recovered/Not Resolved]
  - Drug ineffective [Unknown]
